FAERS Safety Report 9052605 (Version 4)
Quarter: 2013Q4

REPORT INFORMATION
  Report Type: Spontaneous
  Country: US (occurrence: US)
  Receive Date: 20130207
  Receipt Date: 20131125
  Transmission Date: 20140711
  Serious: Yes (Hospitalization)
  Sender: FDA-Public Use
  Company Number: US-PFIZER INC-2013049016

PATIENT
  Age: 66 Year
  Sex: Male
  Weight: 58.96 kg

DRUGS (17)
  1. LYRICA [Suspect]
     Indication: NEUROPATHY PERIPHERAL
     Dosage: 100 MG, 2X/DAY
     Dates: start: 2010
  2. LYRICA [Suspect]
     Dosage: 100 MG, 3X/DAY
  3. LYRICA [Suspect]
     Dosage: 50 MG/DAY
  4. METOPROLOL TARTRATE [Suspect]
     Indication: BLOOD PRESSURE ABNORMAL
     Dosage: 25 MG, 3X/DAY
  5. METOPROLOL TARTRATE [Suspect]
     Dosage: 25 MG, 2X/DAY
  6. PROCARDIA XL [Suspect]
     Dosage: 60 MG, 2X/DAY
  7. PROCARDIA XL [Suspect]
     Dosage: 60 MG/DAY
  8. XANAX [Suspect]
     Dosage: UNK
     Dates: end: 2013
  9. PROCARDIA [Suspect]
     Indication: BLOOD PRESSURE ABNORMAL
     Dosage: UNK
     Dates: end: 2013
  10. OXCARBAZEPINE [Suspect]
     Dosage: UNK
  11. NEORAL [Suspect]
     Indication: LIVER TRANSPLANT
     Dosage: 150 MG, 2X/DAY
  12. CELLCEPT [Suspect]
     Dosage: 250 MG, 2X/DAY
  13. COUMADIN [Suspect]
     Dosage: 2.5 MG/DAY
     Dates: end: 2013
  14. CELEXA [Suspect]
     Indication: ANTIDEPRESSANT THERAPY
     Dosage: 20 MG, DAILY
     Dates: end: 2013
  15. RENVELA [Suspect]
     Dosage: 800 MG, UNK
  16. WELLBUTRIN [Suspect]
     Indication: ANTIDEPRESSANT THERAPY
     Dosage: UNK
     Dates: end: 2013
  17. OXYCONTIN [Suspect]
     Dosage: 40 MG, UNK
     Dates: end: 2013

REACTIONS (8)
  - Renal failure [Unknown]
  - Pain [Unknown]
  - Drug withdrawal syndrome [Unknown]
  - Somnolence [Recovered/Resolved]
  - Pain in extremity [Unknown]
  - Fall [Unknown]
  - Decreased appetite [Unknown]
  - Insomnia [Unknown]
